FAERS Safety Report 13960356 (Version 1)
Quarter: 2017Q3

REPORT INFORMATION
  Report Type: Spontaneous
  Country: US (occurrence: US)
  Receive Date: 20170912
  Receipt Date: 20170912
  Transmission Date: 20171128
  Serious: Yes (Hospitalization, Disabling, Other)
  Sender: FDA-Public Use
  Company Number: None

PATIENT
  Age: 48 Year
  Sex: Female
  Weight: 63 kg

DRUGS (8)
  1. LAMOTRIGINE. [Suspect]
     Active Substance: LAMOTRIGINE
     Indication: EPILEPSY
     Dosage: ?          QUANTITY:84 TABLET(S);?
     Route: 048
     Dates: start: 20170807, end: 20170822
  2. DILTIAZEM 24HR [Concomitant]
  3. PLAQUENIL [Concomitant]
     Active Substance: HYDROXYCHLOROQUINE SULFATE
  4. VITAMIN D2 [Concomitant]
     Active Substance: ERGOCALCIFEROL
  5. BABY ASPIRIN [Concomitant]
     Active Substance: ASPIRIN
  6. MULTI VITAMIN [Concomitant]
     Active Substance: VITAMINS
  7. ONFI [Concomitant]
     Active Substance: CLOBAZAM
  8. CALCIUM +D [Concomitant]
     Active Substance: CALCIUM\VITAMIN D

REACTIONS (9)
  - Rash erythematous [None]
  - Pneumonia [None]
  - Malaise [None]
  - Pyrexia [None]
  - Tremor [None]
  - Hypersensitivity [None]
  - Pain [None]
  - Musculoskeletal stiffness [None]
  - Hepatic enzyme abnormal [None]

NARRATIVE: CASE EVENT DATE: 20170807
